FAERS Safety Report 25298841 (Version 1)
Quarter: 2025Q2

REPORT INFORMATION
  Report Type: Spontaneous
  Country: FR (occurrence: FR)
  Receive Date: 20250512
  Receipt Date: 20250512
  Transmission Date: 20250716
  Serious: Yes (Other)
  Sender: AUROBINDO
  Company Number: FR-AFSSAPS-2025034836

PATIENT
  Age: 47 Year
  Sex: Male
  Weight: 79 kg

DRUGS (2)
  1. RITONAVIR [Interacting]
     Active Substance: RITONAVIR
     Indication: HIV infection
     Dosage: 100 MILLIGRAM, ONCE A DAY
     Route: 048
     Dates: start: 20250120
  2. ELETRIPTAN [Interacting]
     Active Substance: ELETRIPTAN
     Indication: Migraine
     Dosage: 40 MILLIGRAM, ONCE A DAY
     Route: 048
     Dates: start: 20250217, end: 20250217

REACTIONS (2)
  - Hallucination [Recovered/Resolved]
  - Vomiting [Recovered/Resolved]

NARRATIVE: CASE EVENT DATE: 20250217
